FAERS Safety Report 19817458 (Version 1)
Quarter: 2021Q3

REPORT INFORMATION
  Report Type: Report from Study
  Country: US (occurrence: US)
  Receive Date: 20210910
  Receipt Date: 20210910
  Transmission Date: 20211014
  Serious: Yes (Other)
  Sender: FDA-Public Use
  Company Number: US-GILEAD-2021-0547996

PATIENT
  Sex: Male

DRUGS (8)
  1. ADCIRCA [Concomitant]
     Active Substance: TADALAFIL
  2. UPTRAVI [Concomitant]
     Active Substance: SELEXIPAG
  3. INVEGA [Concomitant]
     Active Substance: PALIPERIDONE
  4. AMBRISENTAN [Suspect]
     Active Substance: AMBRISENTAN
     Indication: PULMONARY ARTERIAL HYPERTENSION
     Dosage: 5 MG, QD
     Route: 065
  5. TADALAFIL. [Concomitant]
     Active Substance: TADALAFIL
  6. OMEPRAZOLE. [Concomitant]
     Active Substance: OMEPRAZOLE
  7. XANAX [Concomitant]
     Active Substance: ALPRAZOLAM
  8. ONDANSETRON HYDROCHLORIDE. [Concomitant]
     Active Substance: ONDANSETRON HYDROCHLORIDE

REACTIONS (3)
  - Malaise [Not Recovered/Not Resolved]
  - Angina pectoris [Not Recovered/Not Resolved]
  - Product use issue [Not Recovered/Not Resolved]
